FAERS Safety Report 9161497 (Version 1)
Quarter: 2013Q1

REPORT INFORMATION
  Report Type: Spontaneous
  Country: GB (occurrence: GB)
  Receive Date: 20130313
  Receipt Date: 20130313
  Transmission Date: 20140127
  Serious: Yes (Hospitalization, Other)
  Sender: FDA-Public Use
  Company Number: GB-TEVA-389207ISR

PATIENT
  Age: 68 Year
  Sex: Male
  Weight: 73.02 kg

DRUGS (3)
  1. SIMVASTATIN [Suspect]
     Indication: TRANSIENT ISCHAEMIC ATTACK
     Dosage: 20 MILLIGRAM DAILY;
     Route: 048
     Dates: start: 20101201
  2. ASASANTIN RETARD [Concomitant]
     Dosage: STOPPED AND SWITCHED TO CLOPIDOGREL AFTER ACCIDENT AND EMERGENCY ADMISSION
  3. CLOPIDOGREL [Concomitant]

REACTIONS (2)
  - Hypoaesthesia [Not Recovered/Not Resolved]
  - Loss of control of legs [Recovered/Resolved]
